FAERS Safety Report 16232727 (Version 1)
Quarter: 2019Q2

REPORT INFORMATION
  Report Type: Spontaneous
  Country: US (occurrence: US)
  Receive Date: 20190424
  Receipt Date: 20190424
  Transmission Date: 20190711
  Serious: No
  Sender: FDA-Public Use
  Company Number: US-TORRENT-00007041

PATIENT
  Age: 3 Year
  Sex: Female
  Weight: 13 kg

DRUGS (1)
  1. CETIRIZINE [Suspect]
     Active Substance: CETIRIZINE HYDROCHLORIDE
     Indication: SEASONAL ALLERGY
     Dosage: STRENGTH: 1MG/ML; SOLUTION UNKNOWN
     Route: 048
     Dates: start: 20180810

REACTIONS (2)
  - Product odour abnormal [Unknown]
  - Vomiting [Recovered/Resolved]
